FAERS Safety Report 7544196-1 (Version None)
Quarter: 2011Q2

REPORT INFORMATION
  Report Type: 
  Country: None (occurrence: None)
  Receive Date: 20110613
  Receipt Date: 20061122
  Transmission Date: 20111010
  Serious: Yes (Hospitalization, Other)
  Sender: FDA-Public Use
  Company Number: PHHO2005CA08971

PATIENT
  Sex: Female

DRUGS (6)
  1. SANDOSTATIN LAR [Suspect]
     Indication: GASTRINOMA
     Dosage: 10 MG, EVERY 4 WEEKS
     Dates: start: 20040406, end: 20060822
  2. CELEBREX [Concomitant]
  3. PREVACID [Concomitant]
  4. SANDOSTATIN [Concomitant]
     Dosage: UNK, TID
     Route: 058
     Dates: start: 20060828, end: 20061009
  5. TYLENOL-500 [Concomitant]
  6. TAMOXIFEN CITRATE [Concomitant]

REACTIONS (8)
  - LUNG ABSCESS [None]
  - ABDOMINAL PAIN UPPER [None]
  - FAMILY STRESS [None]
  - PYREXIA [None]
  - INJECTION SITE PHLEBITIS [None]
  - PULMONARY MASS [None]
  - SYNOVIAL CYST [None]
  - BLOOD PRESSURE DECREASED [None]
